FAERS Safety Report 17434490 (Version 2)
Quarter: 2020Q1

REPORT INFORMATION
  Report Type: Spontaneous
  Country: US (occurrence: US)
  Receive Date: 20200219
  Receipt Date: 20200226
  Transmission Date: 20200409
  Serious: No
  Sender: FDA-Public Use
  Company Number: US-PFIZER INC-2020074219

PATIENT
  Age: 57 Year
  Sex: Male
  Weight: 47.62 kg

DRUGS (1)
  1. BOSULIF [Suspect]
     Active Substance: BOSUTINIB MONOHYDRATE
     Indication: CHRONIC MYELOID LEUKAEMIA
     Dosage: 200 MG, DAILY
     Route: 048
     Dates: start: 20200124

REACTIONS (3)
  - Abdominal pain [Unknown]
  - Gastrointestinal pain [Unknown]
  - Blood count abnormal [Unknown]
